FAERS Safety Report 23327702 (Version 3)
Quarter: 2024Q1

REPORT INFORMATION
  Report Type: Spontaneous
  Country: JP (occurrence: JP)
  Receive Date: 20231221
  Receipt Date: 20240129
  Transmission Date: 20240410
  Serious: No
  Sender: FDA-Public Use
  Company Number: JP-PFIZER INC-PV202300204116

PATIENT
  Sex: Female

DRUGS (6)
  1. ENCORAFENIB [Suspect]
     Active Substance: ENCORAFENIB
     Dosage: 300 MG, 1X/DAY
     Dates: start: 20231128
  2. OXALIPLATIN [Suspect]
     Active Substance: OXALIPLATIN
     Dosage: 165 MG, EVERY 2 WEEKS
     Dates: start: 20231128
  3. LEVOLEUCOVORIN CALCIUM [Suspect]
     Active Substance: LEVOLEUCOVORIN CALCIUM
     Dosage: 375 MG, EVERY 2 WEEKS
     Dates: start: 20231128
  4. FLUOROURACIL [Suspect]
     Active Substance: FLUOROURACIL
     Dosage: 750 MG, EVERY 2 WEEKS, BOLUS
     Dates: start: 20231128
  5. FLUOROURACIL [Suspect]
     Active Substance: FLUOROURACIL
     Dosage: 750 MG, EVERY 2 WEEKS, INFUSION
     Dates: start: 20231128
  6. CETUXIMAB [Suspect]
     Active Substance: CETUXIMAB
     Dosage: 970 MG, EVERY 2 WEEKS
     Dates: start: 20231128

REACTIONS (2)
  - Occupational exposure to product [Unknown]
  - Puncture site erythema [Unknown]

NARRATIVE: CASE EVENT DATE: 20231214
